FAERS Safety Report 16149305 (Version 1)
Quarter: 2019Q2

REPORT INFORMATION
  Report Type: Spontaneous
  Country: DE (occurrence: DE)
  Receive Date: 20190402
  Receipt Date: 20190402
  Transmission Date: 20190711
  Serious: No
  Sender: FDA-Public Use
  Company Number: DE-DENTSPLY-2019SCDP000201

PATIENT
  Sex: Female

DRUGS (1)
  1. MEPIVACAINE HCL [Suspect]
     Active Substance: MEPIVACAINE\MEPIVACAINE HYDROCHLORIDE
     Indication: DENTAL LOCAL ANAESTHESIA
     Dosage: UNK
     Route: 004

REACTIONS (1)
  - Hypersensitivity [Unknown]
